FAERS Safety Report 21689571 (Version 1)
Quarter: 2022Q4

REPORT INFORMATION
  Report Type: Spontaneous
  Country: MX (occurrence: MX)
  Receive Date: 20221206
  Receipt Date: 20221206
  Transmission Date: 20230113
  Serious: Yes (Death)
  Sender: FDA-Public Use
  Company Number: MX-SA-SAC20221205000555

PATIENT
  Age: 34 Year
  Sex: Female

DRUGS (1)
  1. LANTUS [Suspect]
     Active Substance: INSULIN GLARGINE
     Dosage: UNK
     Route: 058
     Dates: start: 2015, end: 2019

REACTIONS (3)
  - Diabetic complication [Fatal]
  - Haemodialysis complication [Fatal]
  - Renal transplant [Fatal]

NARRATIVE: CASE EVENT DATE: 20190101
